FAERS Safety Report 8413749-0 (Version None)
Quarter: 2012Q2

REPORT INFORMATION
  Report Type: 
  Country: None (occurrence: None)
  Receive Date: 20120605
  Receipt Date: 20120531
  Transmission Date: 20120825
  Serious: Yes (Other)
  Sender: FDA-Public Use
  Company Number: US-AMGEN-USASP2012034429

PATIENT
  Age: 73 Year
  Sex: Female
  Weight: 62.585 kg

DRUGS (3)
  1. GEMZAR [Concomitant]
     Indication: NEOPLASM MALIGNANT
     Dosage: UNK
     Dates: start: 20120101
  2. PROCRIT [Suspect]
     Indication: HAEMOGLOBIN DECREASED
     Dosage: UNK
     Route: 058
     Dates: start: 20120522
  3. AMLODIPINE [Concomitant]
     Indication: BLOOD PRESSURE
     Dosage: UNK
     Dates: start: 19920101

REACTIONS (6)
  - CONDITION AGGRAVATED [None]
  - FEELING ABNORMAL [None]
  - FATIGUE [None]
  - ASTHENIA [None]
  - URINARY TRACT INFECTION [None]
  - DRUG INEFFECTIVE [None]
